FAERS Safety Report 7693399-4 (Version None)
Quarter: 2011Q3

REPORT INFORMATION
  Report Type: 
  Country: None (occurrence: None)
  Receive Date: 20110819
  Receipt Date: 20110808
  Transmission Date: 20111222
  Serious: Yes (Hospitalization, Other)
  Sender: FDA-Public Use
  Company Number: US-ACTELION-A-NJ2011-51719

PATIENT

DRUGS (18)
  1. SEROQUEL [Concomitant]
  2. EPOPROSTENOL SODIUM [Suspect]
     Indication: PULMONARY ARTERIAL HYPERTENSION
     Dosage: 24.5 NG/KG, PER MIN
     Route: 041
     Dates: start: 20110705, end: 20110715
  3. SYNTHROID [Concomitant]
  4. FERROUS SULFATE TAB [Concomitant]
  5. SILDENAFIL CITRATE [Concomitant]
  6. SPIRONOLACTONE [Concomitant]
  7. ALPRAZOLAM [Concomitant]
  8. PRAMIPEXOLE DIHYDROCHLORIDE [Concomitant]
  9. FOLIC ACID [Concomitant]
  10. OXYGEN [Concomitant]
  11. CYMBALTA [Concomitant]
  12. NITROGLYCERIN [Concomitant]
  13. OMEPRAZOLE [Concomitant]
  14. DARVOCET [Concomitant]
  15. ALLOPURINOL [Concomitant]
  16. AMBIEN [Concomitant]
  17. LASIX [Concomitant]
  18. GABAPENTIN [Concomitant]

REACTIONS (7)
  - CELLULITIS [None]
  - TENDERNESS [None]
  - ERYTHEMA [None]
  - FALL [None]
  - HAEMATOMA [None]
  - EXCORIATION [None]
  - OEDEMA PERIPHERAL [None]
